FAERS Safety Report 9478839 (Version 1)
Quarter: 2013Q3

REPORT INFORMATION
  Report Type: Spontaneous
  Country: CZ (occurrence: CZ)
  Receive Date: 20130827
  Receipt Date: 20130827
  Transmission Date: 20140515
  Serious: Yes (Hospitalization)
  Sender: FDA-Public Use
  Company Number: PHHY2013CZ090837

PATIENT
  Age: 57 Year
  Sex: Male

DRUGS (13)
  1. METHOTREXATE [Suspect]
     Indication: PSORIATIC ARTHROPATHY
     Dosage: 10 MG, WEEKLY
     Dates: start: 2003, end: 2009
  2. METHOTREXATE [Suspect]
     Dosage: 15 MG, WEEKLY
     Dates: start: 2009, end: 2009
  3. DITHIADEN [Concomitant]
     Dosage: 2 MG, QD
  4. HELICID [Concomitant]
     Dosage: 20 MG, QD
  5. NSAID^S [Concomitant]
  6. CORTICOSTEROIDS [Concomitant]
  7. UREA [Concomitant]
  8. SALICYLIC ACID [Concomitant]
  9. CIGNOLIN [Concomitant]
  10. FOLINIC ACID [Concomitant]
     Dosage: 20 MG, WEEKLY
  11. DICLOFENAC [Concomitant]
     Dosage: 150 MG, DAILY
  12. ANTISEPTICS [Concomitant]
  13. ANTIBIOTICS [Concomitant]

REACTIONS (8)
  - Arthralgia [Recovered/Resolved]
  - Spinal pain [Recovered/Resolved]
  - Musculoskeletal stiffness [Recovered/Resolved]
  - Erythema [Recovered/Resolved]
  - Skin exfoliation [Recovered/Resolved]
  - Nail dystrophy [Recovered/Resolved]
  - Dactylitis [Recovered/Resolved]
  - Drug ineffective [Recovered/Resolved]
